FAERS Safety Report 15248917 (Version 2)
Quarter: 2019Q1

REPORT INFORMATION
  Report Type: Spontaneous
  Country: US (occurrence: US)
  Receive Date: 20180807
  Receipt Date: 20190122
  Transmission Date: 20190417
  Serious: No
  Sender: FDA-Public Use
  Company Number: US-PFIZER INC-2018313224

PATIENT
  Age: 49 Year
  Sex: Female

DRUGS (2)
  1. DEMEROL [Suspect]
     Active Substance: MEPERIDINE HYDROCHLORIDE
     Dosage: UNK
  2. HYDROMORPHONE HYDROCHLORIDE. [Suspect]
     Active Substance: HYDROMORPHONE HYDROCHLORIDE
     Dosage: UNK

REACTIONS (4)
  - Drug hypersensitivity [Unknown]
  - Vomiting [Unknown]
  - Nausea [Unknown]
  - Rash [Unknown]
